FAERS Safety Report 8361977-5 (Version None)
Quarter: 2012Q2

REPORT INFORMATION
  Report Type: 
  Country: None (occurrence: None)
  Receive Date: 20120515
  Receipt Date: 20120426
  Transmission Date: 20120825
  Serious: No
  Sender: FDA-Public Use
  Company Number: US-ASTRAZENECA-2012SE27214

PATIENT
  Age: 76 Year
  Sex: Female
  Weight: 64.4 kg

DRUGS (3)
  1. FASLODEX [Suspect]
     Indication: BREAST CANCER
     Route: 030
  2. CLARITIN [Concomitant]
  3. COUGH SYRUP WITH CODEINE [Concomitant]

REACTIONS (3)
  - DYSPHONIA [None]
  - HEAD TITUBATION [None]
  - COUGH [None]
